FAERS Safety Report 8301752-0 (Version None)
Quarter: 2012Q2

REPORT INFORMATION
  Report Type: 
  Country: None (occurrence: None)
  Receive Date: 20120417
  Receipt Date: 20120404
  Transmission Date: 20120825
  Serious: Yes (Hospitalization)
  Sender: FDA-Public Use
  Company Number: LMI-2012-00134

PATIENT
  Age: 63 Year
  Sex: Male

DRUGS (1)
  1. DEFINITY [Suspect]

REACTIONS (3)
  - SYNCOPE [None]
  - BUNDLE BRANCH BLOCK LEFT [None]
  - EJECTION FRACTION DECREASED [None]
